FAERS Safety Report 23150445 (Version 1)
Quarter: 2023Q4

REPORT INFORMATION
  Report Type: Spontaneous
  Country: PT (occurrence: PT)
  Receive Date: 20231106
  Receipt Date: 20231106
  Transmission Date: 20240110
  Serious: Yes (Hospitalization, Other)
  Sender: FDA-Public Use
  Company Number: None

PATIENT
  Age: 65 Year
  Sex: Female

DRUGS (24)
  1. CYCLOPHOSPHAMIDE [Suspect]
     Active Substance: CYCLOPHOSPHAMIDE
     Indication: Product used for unknown indication
     Dosage: 6 CYCLES
     Route: 065
     Dates: start: 2014
  2. CISPLATIN [Suspect]
     Active Substance: CISPLATIN
     Indication: Follicular lymphoma
     Dosage: UNK (4 CYCLES)
     Route: 065
     Dates: start: 201509, end: 201601
  3. CYTARABINE [Suspect]
     Active Substance: CYTARABINE
     Indication: Follicular lymphoma
     Dosage: UNK (4 CYCLES)
     Route: 065
     Dates: start: 201509, end: 201601
  4. DOXORUBICIN [Suspect]
     Active Substance: DOXORUBICIN
     Indication: Follicular lymphoma
     Dosage: 6 CYCLES
     Route: 042
     Dates: start: 2014
  5. DOXORUBICIN [Suspect]
     Active Substance: DOXORUBICIN
     Indication: Follicular lymphoma
     Dosage: 6 CYCLES
     Route: 042
     Dates: start: 201603, end: 201610
  6. ETOPOSIDE [Suspect]
     Active Substance: ETOPOSIDE
     Indication: Follicular lymphoma
     Dosage: 4 CYCLES
     Route: 065
     Dates: start: 201509, end: 201601
  7. GEMCITABINE [Suspect]
     Active Substance: GEMCITABINE
     Indication: Follicular lymphoma
     Dosage: UNK
     Route: 065
     Dates: start: 201603, end: 201610
  8. MIRTAZAPINE [Suspect]
     Active Substance: MIRTAZAPINE
     Indication: Follicular lymphoma
     Dosage: UNK
     Route: 065
  9. METHYLPREDNISOLONE [Suspect]
     Active Substance: METHYLPREDNISOLONE
     Indication: Follicular lymphoma
     Dosage: UNK (4 CYCLES)
     Route: 065
     Dates: start: 201509, end: 201601
  10. OBINUTUZUMAB [Suspect]
     Active Substance: OBINUTUZUMAB
     Indication: Product used for unknown indication
     Dosage: 2 CYLCES
     Route: 065
     Dates: start: 201708, end: 201709
  11. OBINUTUZUMAB [Suspect]
     Active Substance: OBINUTUZUMAB
     Indication: Follicular lymphoma
     Dosage: 4 CYCLES
     Route: 065
     Dates: start: 201703, end: 201706
  12. OMEPRAZOLE [Suspect]
     Active Substance: OMEPRAZOLE
     Indication: Follicular lymphoma
     Dosage: 10 MG, UNK
     Route: 065
  13. OMEPRAZOLE [Suspect]
     Active Substance: OMEPRAZOLE
     Indication: Follicular lymphoma
     Dosage: 10MG, UNK
     Route: 065
  14. OMEPRAZOLE [Suspect]
     Active Substance: OMEPRAZOLE
     Indication: Follicular lymphoma
     Dosage: 30MG, UNK
     Route: 065
  15. PREDNISOLONE [Suspect]
     Active Substance: PREDNISOLONE
     Indication: Follicular lymphoma
     Dosage: 6 CYCLES
     Route: 065
     Dates: start: 2014
  16. RITUXIMAB [Suspect]
     Active Substance: RITUXIMAB
     Indication: Follicular lymphoma
     Dosage: 375 MG/M2, CYCLIC (4 CYCLES)
     Route: 065
     Dates: start: 2009
  17. RITUXIMAB [Suspect]
     Active Substance: RITUXIMAB
     Indication: Product used for unknown indication
     Dosage: 4 CYCLES
     Route: 065
     Dates: start: 201509, end: 201601
  18. RITUXIMAB [Suspect]
     Active Substance: RITUXIMAB
     Indication: Product used for unknown indication
     Dosage: 6 CYCLES
     Route: 065
     Dates: start: 2014
  19. SERTRALINE [Suspect]
     Active Substance: SERTRALINE HYDROCHLORIDE
     Indication: Product used for unknown indication
     Dosage: UNK
     Route: 065
  20. TREANDA [Suspect]
     Active Substance: BENDAMUSTINE HYDROCHLORIDE
     Indication: Follicular lymphoma
     Dosage: 4 CYLCLES
     Route: 042
     Dates: start: 201703, end: 201706
  21. TREANDA [Suspect]
     Active Substance: BENDAMUSTINE HYDROCHLORIDE
     Indication: Product used for unknown indication
     Dosage: DOSAGE FORM: POWDER, 2 CYCLES
     Route: 042
     Dates: start: 201708, end: 201709
  22. VINCRISTINE [Suspect]
     Active Substance: VINCRISTINE
     Indication: Follicular lymphoma
     Dosage: 6 CYCLES
     Route: 065
     Dates: start: 2014
  23. VINORELBINE [Suspect]
     Active Substance: VINORELBINE TARTRATE
     Indication: Follicular lymphoma
     Dosage: UNK UNK, CYCLIC (6 CYCLES)
     Route: 065
     Dates: start: 2014
  24. VINORELBINE [Suspect]
     Active Substance: VINORELBINE TARTRATE
     Indication: Product used for unknown indication
     Dosage: UNK, UNKNOWN FREQ. (6 CYCLES)
     Route: 065
     Dates: start: 201603, end: 201610

REACTIONS (10)
  - Herpes zoster [Unknown]
  - Suicide attempt [Unknown]
  - Influenza [Unknown]
  - Non-Hodgkin^s lymphoma recurrent [Unknown]
  - Urinary tract infection bacterial [Unknown]
  - Febrile neutropenia [Unknown]
  - Pneumonia [Unknown]
  - Cough [Unknown]
  - Psychotic disorder [Unknown]
  - Depression [Unknown]

NARRATIVE: CASE EVENT DATE: 20140901
